FAERS Safety Report 24402121 (Version 1)
Quarter: 2024Q4

REPORT INFORMATION
  Report Type: Spontaneous
  Country: PT (occurrence: PT)
  Receive Date: 20241007
  Receipt Date: 20241007
  Transmission Date: 20250115
  Serious: Yes (Other)
  Sender: SANDOZ
  Company Number: None

PATIENT
  Age: 30 Year
  Sex: Female
  Weight: 62 kg

DRUGS (2)
  1. HYRIMOZ [Suspect]
     Active Substance: ADALIMUMAB-ADAZ
     Indication: Uveitis
     Dosage: 14/14 DIAS
     Route: 058
     Dates: start: 20240419
  2. FOLYOBEN [Concomitant]
     Indication: Product used for unknown indication
     Dosage: 0.6 MG COMPRIMIDO
     Route: 065

REACTIONS (2)
  - Amenorrhoea [Unknown]
  - Paraesthesia [Unknown]

NARRATIVE: CASE EVENT DATE: 20240626
